APPROVED DRUG PRODUCT: LORAZEPAM
Active Ingredient: LORAZEPAM
Strength: 2MG/ML
Dosage Form/Route: INJECTABLE;INJECTION
Application: A075025 | Product #001 | TE Code: AP
Applicant: RISING PHARMA HOLDINGS INC
Approved: Jul 23, 1998 | RLD: No | RS: No | Type: RX